FAERS Safety Report 12627100 (Version 1)
Quarter: 2016Q3

REPORT INFORMATION
  Report Type: Spontaneous
  Country: NO (occurrence: NO)
  Receive Date: 20160805
  Receipt Date: 20160805
  Transmission Date: 20161109
  Serious: Yes (Death)
  Sender: FDA-Public Use
  Company Number: NO-ALLERGAN-1664773US

PATIENT
  Age: 66 Year
  Sex: Male
  Weight: 77 kg

DRUGS (5)
  1. BOTOX [Suspect]
     Active Substance: ONABOTULINUMTOXINA
     Dosage: UNK UNITS SINGLE
     Route: 030
     Dates: start: 20160209, end: 20160209
  2. CLARITIN [Concomitant]
     Active Substance: LORATADINE
     Indication: HYPERSENSITIVITY
     Dosage: 10 MG DAILY
  3. METOPROLOL TARTRATE. [Concomitant]
     Active Substance: METOPROLOL TARTRATE
     Indication: HEART RATE
     Dosage: 100 MG DAILY
     Route: 048
     Dates: end: 20160229
  4. RHINOCORT [Concomitant]
     Active Substance: BUDESONIDE
     Indication: HYPERSENSITIVITY
     Dosage: 100 MICROGRAMS EVERY OTHER DAY
     Route: 055
  5. BOTOX [Suspect]
     Active Substance: ONABOTULINUMTOXINA
     Indication: SALIVARY HYPERSECRETION
     Dosage: UNK UNITS, SINGLE
     Route: 030
     Dates: start: 20160226, end: 20160226

REACTIONS (5)
  - Death [Fatal]
  - General physical health deterioration [Unknown]
  - Hallucination [Unknown]
  - Off label use [Unknown]
  - Lip swelling [Unknown]

NARRATIVE: CASE EVENT DATE: 20160229
